FAERS Safety Report 18954462 (Version 3)
Quarter: 2021Q4

REPORT INFORMATION
  Report Type: Report from Study
  Country: IE (occurrence: IE)
  Receive Date: 20210301
  Receipt Date: 20211011
  Transmission Date: 20220303
  Serious: Yes (Hospitalization)
  Sender: FDA-Public Use
  Company Number: IE-PFIZER INC-2021180133

PATIENT
  Weight: 55.7 kg

DRUGS (12)
  1. MITOXANTRONE HYDROCHLORIDE [Suspect]
     Active Substance: MITOXANTRONE HYDROCHLORIDE
     Indication: Acute myeloid leukaemia
     Dosage: 18.8 MG/M2 ONCE DAILY, CYCLIC (COURSE 1)
     Route: 042
     Dates: start: 20210126, end: 20210129
  2. GEMTUZUMAB OZOGAMICIN [Suspect]
     Active Substance: GEMTUZUMAB OZOGAMICIN
     Indication: Acute myeloid leukaemia
     Dosage: 4.8 MG (FREQUENCY OTHER), CYCLIC (COURSE 1)
     Route: 042
     Dates: start: 20210129, end: 20210129
  3. POSACONAZOLE [Concomitant]
     Active Substance: POSACONAZOLE
     Indication: Antifungal prophylaxis
     Dosage: 300 MG, 1X/DAY
     Dates: start: 20210206, end: 20210209
  4. PIPERACILLIN SODIUM\TAZOBACTAM SODIUM [Concomitant]
     Active Substance: PIPERACILLIN SODIUM\TAZOBACTAM SODIUM
     Indication: Febrile neutropenia
     Dosage: 4.5 MG, 4X/DAY (EVERY 6 HRS)
     Dates: start: 20210205, end: 20210209
  5. GENTAMICIN [Concomitant]
     Active Substance: GENTAMICIN
     Indication: Febrile neutropenia
     Dosage: 413 MG, 1X/DAY
     Dates: start: 20210205, end: 20210206
  6. ONDANSETRON [Concomitant]
     Active Substance: ONDANSETRON
     Indication: Nausea
     Dosage: 8 MG (FREQ: OTHER)
     Dates: start: 20210121, end: 20210205
  7. ONDANSETRON [Concomitant]
     Active Substance: ONDANSETRON
     Dosage: 8 MG, 3X/DAY (EVERY 8 HRS)
     Dates: start: 20210206, end: 20210209
  8. MOVICOL [Concomitant]
     Active Substance: POLYETHYLENE GLYCOL 3350\POTASSIUM CHLORIDE\SODIUM BICARBONATE\SODIUM CHLORIDE
     Indication: Constipation
     Dosage: UNK, 3X/DAY (EVERY 8 HRS)
     Dates: start: 20210205, end: 20210206
  9. COTRIMOXAZOLE [Concomitant]
     Active Substance: SULFAMETHOXAZOLE\TRIMETHOPRIM
     Indication: Prophylaxis
     Dosage: 960 MG (FREQ: OTHER)
     Dates: start: 20210201, end: 20210207
  10. HEPARIN SODIUM [Concomitant]
     Active Substance: HEPARIN SODIUM
     Indication: Flushing
     Dosage: 2 ML (FREQ: OTHER)
     Dates: start: 20210205, end: 20210206
  11. AMPHOTERIN [Concomitant]
     Indication: Prophylaxis
     Dosage: 59 MG (FREQ: OTHER)
     Dates: start: 20210131, end: 20210203
  12. ORAMORPH SR SUSTAINED RELEASE [Concomitant]
     Active Substance: MORPHINE SULFATE
     Indication: Pain
     Dosage: 5 MG (FREQ: OTHER)
     Dates: start: 20210202, end: 20210204

REACTIONS (1)
  - Febrile neutropenia [Recovered/Resolved]

NARRATIVE: CASE EVENT DATE: 20210213
